FAERS Safety Report 7035885-6 (Version None)
Quarter: 2010Q4

REPORT INFORMATION
  Report Type: 
  Country: None (occurrence: None)
  Receive Date: 20101008
  Receipt Date: 20101001
  Transmission Date: 20110411
  Serious: Yes (Death, Other)
  Sender: FDA-Public Use
  Company Number: US-AMGEN-KDL443651

PATIENT
  Sex: Male
  Weight: 95.3 kg

DRUGS (2)
  1. PROCRIT [Suspect]
     Indication: PRODUCT USED FOR UNKNOWN INDICATION
     Route: 058
     Dates: end: 20090501
  2. UNSPECIFIED ANTINEOPLASTIC AGENT [Concomitant]
     Dates: end: 20090616

REACTIONS (5)
  - ABNORMAL BEHAVIOUR [None]
  - AGGRESSION [None]
  - AMNESIA [None]
  - BRAIN SCAN ABNORMAL [None]
  - COMPLETED SUICIDE [None]
